FAERS Safety Report 15727654 (Version 2)
Quarter: 2019Q2

REPORT INFORMATION
  Report Type: Spontaneous
  Country: US (occurrence: US)
  Receive Date: 20181217
  Receipt Date: 20190508
  Transmission Date: 20190711
  Serious: Yes (Death, Other)
  Sender: FDA-Public Use
  Company Number: US-NOVEN PHARMACEUTICALS, INC.-US2018000339

PATIENT

DRUGS (7)
  1. PROGESTERONE IN OIL [Suspect]
     Active Substance: PROGESTERONE
     Indication: PRODUCT USED FOR UNKNOWN INDICATION
  2. SYNERA [Suspect]
     Active Substance: LIDOCAINE\TETRACAINE
     Indication: HYPOAESTHESIA
     Dosage: UNK, UNKNOWN
     Route: 062
  3. TRILEPTAL [Suspect]
     Active Substance: OXCARBAZEPINE
     Indication: SEIZURE
     Dosage: 150 MG, BID
     Route: 065
  4. TEMPRA [Suspect]
     Active Substance: ACETAMINOPHEN
     Indication: SEIZURE
     Dosage: 1500 MG IN MORNING AND 2250 MG AT NIGHT
     Route: 065
  5. LEVETIRACETAM. [Suspect]
     Active Substance: LEVETIRACETAM
     Indication: PRODUCT USED FOR UNKNOWN INDICATION
  6. LACOSAMIDE. [Suspect]
     Active Substance: LACOSAMIDE
     Indication: SEIZURE
     Dosage: 100 MG, BID
     Route: 065
  7. MINIVELLE [Suspect]
     Active Substance: ESTRADIOL
     Indication: PRODUCT USED FOR UNKNOWN INDICATION
     Dosage: 0.2 MG, APPLYING TWO PATCHES OF 0.1 MG EVERY 72 HOURS
     Route: 062
     Dates: start: 201707, end: 201708

REACTIONS (2)
  - Foetal exposure during pregnancy [Recovered/Resolved]
  - Foetal death [Fatal]

NARRATIVE: CASE EVENT DATE: 2017
